FAERS Safety Report 4682370-2 (Version None)
Quarter: 2005Q2

REPORT INFORMATION
  Report Type: 
  Country: None (occurrence: None)
  Receive Date: 20050601
  Receipt Date: 20050517
  Transmission Date: 20051028
  Serious: Yes (Death, Hospitalization)
  Sender: FDA-Public Use
  Company Number: THYM-10547

PATIENT
  Age: 63 Year
  Sex: Male
  Weight: 95 kg

DRUGS (3)
  1. THYMOGLOBULIN [Suspect]
     Indication: HEART TRANSPLANT
     Dosage: 150 MG QD IV
     Route: 042
     Dates: start: 20050512, end: 20050515
  2. ANTIHISTAMINE [Concomitant]
  3. STEROIDS [Concomitant]

REACTIONS (4)
  - ANAPHYLACTIC SHOCK [None]
  - HEPATIC FAILURE [None]
  - HYPOTENSION [None]
  - RIGHT VENTRICULAR FAILURE [None]
